FAERS Safety Report 22169908 (Version 4)
Quarter: 2023Q2

REPORT INFORMATION
  Report Type: Spontaneous
  Country: DE (occurrence: DE)
  Receive Date: 20230404
  Receipt Date: 20230610
  Transmission Date: 20230721
  Serious: Yes (Other)
  Sender: FDA-Public Use
  Company Number: DE-BRISTOL-MYERS SQUIBB COMPANY-2023-037404

PATIENT
  Age: 58 Year
  Sex: Male
  Weight: 72 kg

DRUGS (6)
  1. CARBOPLATIN [Suspect]
     Active Substance: CARBOPLATIN
     Indication: Non-small cell lung cancer
     Dosage: 774 MG, Q3W
     Route: 042
     Dates: start: 20211124, end: 20211215
  2. CARBOPLATIN [Suspect]
     Active Substance: CARBOPLATIN
     Dosage: 694 MG, Q3W
     Route: 042
     Dates: start: 20211124, end: 20211215
  3. OPDIVO [Suspect]
     Active Substance: NIVOLUMAB
     Indication: Non-small cell lung cancer
     Dosage: 360 MG, Q3W
     Route: 042
     Dates: start: 20211124, end: 20220126
  4. YERVOY [Suspect]
     Active Substance: IPILIMUMAB
     Indication: Non-small cell lung cancer
     Dosage: 92 MG (6 WEEKS)
     Route: 042
     Dates: start: 20211124, end: 20220105
  5. YERVOY [Suspect]
     Active Substance: IPILIMUMAB
     Dosage: 92 MG (6 WEEKS)
     Route: 042
     Dates: start: 20211126, end: 20220105
  6. PREDNISOLONE [Concomitant]
     Active Substance: PREDNISOLONE
     Indication: Product used for unknown indication
     Dosage: UNK
     Route: 065
     Dates: start: 20220208, end: 20220317

REACTIONS (3)
  - Autoimmune hepatitis [Recovered/Resolved with Sequelae]
  - Rash pruritic [Recovered/Resolved]
  - Prescribed overdose [Unknown]

NARRATIVE: CASE EVENT DATE: 20211215
